FAERS Safety Report 20128123 (Version 1)
Quarter: 2021Q4

REPORT INFORMATION
  Report Type: Spontaneous
  Country: CN (occurrence: CN)
  Receive Date: 20211129
  Receipt Date: 20211129
  Transmission Date: 20220303
  Serious: Yes (Hospitalization)
  Sender: FDA-Public Use
  Company Number: CN-BAXTER-2021BAX037329

PATIENT
  Age: 51 Year
  Sex: Male

DRUGS (2)
  1. DIANEAL [Suspect]
     Active Substance: CALCIUM CHLORIDE\DEXTROSE\MAGNESIUM CHLORIDE\SODIUM CHLORIDE\SODIUM LACTATE
     Indication: Chronic kidney disease
     Dosage: 2 BAGS
     Route: 033
     Dates: start: 20190418
  2. DIANEAL [Suspect]
     Active Substance: CALCIUM CHLORIDE\DEXTROSE\MAGNESIUM CHLORIDE\SODIUM CHLORIDE\SODIUM LACTATE
     Indication: Chronic kidney disease
     Dosage: 3 BAGS
     Route: 033
     Dates: start: 20190418

REACTIONS (3)
  - Peritoneal effluent abnormal [Recovering/Resolving]
  - Scrotal disorder [Recovering/Resolving]
  - Peritoneal dialysis complication [Unknown]

NARRATIVE: CASE EVENT DATE: 20211118
